FAERS Safety Report 5313566-4 (Version None)
Quarter: 2007Q2

REPORT INFORMATION
  Report Type: 
  Country: None (occurrence: None)
  Receive Date: 20070501
  Receipt Date: 20070205
  Transmission Date: 20071010
  Serious: No
  Sender: FDA-Public Use
  Company Number: 2007UW02428

PATIENT
  Age: 10 Year
  Sex: Male
  Weight: 27.9 kg

DRUGS (1)
  1. ENTOCORT EC [Suspect]
     Indication: CROHN'S DISEASE
     Route: 048
     Dates: start: 20070203, end: 20070204

REACTIONS (1)
  - RASH PRURITIC [None]
